FAERS Safety Report 6574554-3 (Version None)
Quarter: 2010Q1

REPORT INFORMATION
  Report Type: 
  Country: None (occurrence: None)
  Receive Date: 20100209
  Receipt Date: 20090908
  Transmission Date: 20100710
  Serious: No
  Sender: FDA-Public Use
  Company Number: A0806819A

PATIENT
  Age: 47 Year
  Sex: Male

DRUGS (3)
  1. PAROXETINE HCL [Suspect]
     Dosage: 10MG PER DAY
     Route: 048
     Dates: start: 20090401, end: 20090501
  2. PAXIL [Suspect]
     Dosage: 10MG PER DAY
     Route: 048
  3. LIPITOR [Concomitant]

REACTIONS (4)
  - ANXIETY [None]
  - LIBIDO DECREASED [None]
  - OBSESSIVE THOUGHTS [None]
  - OBSESSIVE-COMPULSIVE DISORDER [None]
